FAERS Safety Report 8762270 (Version 2)
Quarter: 2013Q4

REPORT INFORMATION
  Report Type: Spontaneous
  Country: US (occurrence: US)
  Receive Date: 20120830
  Receipt Date: 20131101
  Transmission Date: 20140711
  Serious: No
  Sender: FDA-Public Use
  Company Number: US-009507513-1208USA011014

PATIENT
  Sex: Female

DRUGS (4)
  1. LOTRIMIN AF [Suspect]
     Indication: ONYCHOMYCOSIS
     Dosage: UNK, UNKNOWN
     Route: 061
  2. LOTRIMIN AF [Suspect]
     Indication: MEDICAL OBSERVATION
  3. LOTRIMIN ULTRA [Suspect]
     Indication: ONYCHOMYCOSIS
     Dosage: UNK, UNKNOWN
     Route: 061
  4. LOTRIMIN ULTRA [Suspect]
     Indication: MEDICAL OBSERVATION

REACTIONS (2)
  - Drug ineffective for unapproved indication [Unknown]
  - Off label use [Unknown]
